FAERS Safety Report 18122935 (Version 1)
Quarter: 2020Q3

REPORT INFORMATION
  Report Type: Spontaneous
  Country: US (occurrence: US)
  Receive Date: 20200807
  Receipt Date: 20200807
  Transmission Date: 20201103
  Serious: No
  Sender: FDA-Public Use
  Company Number: US-JNJFOC-20100304969

PATIENT
  Age: 39 Year
  Sex: Female

DRUGS (3)
  1. ELMIRON [Suspect]
     Active Substance: PENTOSAN POLYSULFATE SODIUM
     Indication: CYSTITIS INTERSTITIAL
     Dosage: 1 X INTRA VESICLE
     Route: 043
     Dates: start: 20100311, end: 20100311
  2. HYDROCODONE [Suspect]
     Active Substance: HYDROCODONE
     Indication: CYSTITIS INTERSTITIAL
     Dosage: 1 TAB
     Route: 065
     Dates: start: 20100309, end: 20100309
  3. IBUPROFEN. [Suspect]
     Active Substance: IBUPROFEN
     Indication: CYSTITIS INTERSTITIAL
     Dosage: 200 MG TOOK 2 TABS
     Route: 065
     Dates: start: 20100310, end: 20100310

REACTIONS (4)
  - Visual impairment [Recovered/Resolved]
  - Vision blurred [Recovered/Resolved]
  - Somnolence [Recovered/Resolved]
  - Incorrect route of product administration [Recovered/Resolved]

NARRATIVE: CASE EVENT DATE: 20100311
